FAERS Safety Report 25902251 (Version 3)
Quarter: 2025Q4

REPORT INFORMATION
  Report Type: Spontaneous
  Country: EU (occurrence: EU)
  Receive Date: 20251009
  Receipt Date: 20251114
  Transmission Date: 20260118
  Serious: Yes (Hospitalization, Other)
  Sender: SANOFI AVENTIS
  Company Number: None

PATIENT
  Age: 66 Year
  Sex: Female

DRUGS (15)
  1. ZOLPIDEM TARTRATE [Suspect]
     Active Substance: ZOLPIDEM TARTRATE
     Indication: Insomnia
     Dosage: 10 MG, ONE TABLET
     Dates: start: 201512, end: 201601
  2. MELOXICAM [Suspect]
     Active Substance: MELOXICAM
     Indication: Pain in extremity
     Dosage: 15 MG/1.5 ML WAS ADMINISTERED INTRAMUSCULARLY ONCE A DAY
     Route: 030
     Dates: start: 201512, end: 201601
  3. METHYLPREDNISOLONE HEMISUCCINATE [Suspect]
     Active Substance: METHYLPREDNISOLONE HEMISUCCINATE
     Dosage: 4 MG, QD
     Route: 048
  4. METHYLPREDNISOLONE HEMISUCCINATE [Suspect]
     Active Substance: METHYLPREDNISOLONE HEMISUCCINATE
     Dosage: 250 MG, SOL
  5. METHYLPREDNISOLONE HEMISUCCINATE [Suspect]
     Active Substance: METHYLPREDNISOLONE HEMISUCCINATE
     Dosage: 32 MG
     Route: 048
  6. METHYLPREDNISOLONE HEMISUCCINATE [Suspect]
     Active Substance: METHYLPREDNISOLONE HEMISUCCINATE
     Dosage: 24 MG, REDUCED
     Route: 048
     Dates: start: 20160209, end: 20160210
  7. METHYLPREDNISOLONE HEMISUCCINATE [Suspect]
     Active Substance: METHYLPREDNISOLONE HEMISUCCINATE
     Dosage: 20 MG, REDUCED
     Route: 048
  8. PAROXETINE HYDROCHLORIDE [Suspect]
     Active Substance: PAROXETINE HYDROCHLORIDE
     Indication: Depression
     Dosage: 20 MG, QD
     Route: 048
     Dates: start: 201512, end: 201601
  9. IBUPROFEN [Suspect]
     Active Substance: IBUPROFEN
     Indication: Pain in extremity
     Dosage: 400 MG, TID
     Route: 048
     Dates: start: 201512, end: 201601
  10. RIBAVIRIN [Suspect]
     Active Substance: RIBAVIRIN
     Indication: Hepatitis C
     Dosage: UNK
     Dates: start: 201509, end: 201512
  11. NIMESULIDE [Suspect]
     Active Substance: NIMESULIDE
     Indication: Pain in extremity
     Dosage: 100 MG, QD, THREE PACKS PER DAY
     Route: 048
     Dates: start: 201512, end: 201601
  12. MELDONIUM DIHYDRATE [Suspect]
     Active Substance: MELDONIUM DIHYDRATE
     Indication: Hypoaesthesia
     Dosage: 250 MG, BID
     Route: 048
     Dates: start: 201512, end: 201601
  13. IPIDACRINE [Suspect]
     Active Substance: IPIDACRINE
     Indication: Hypoaesthesia
     Dosage: 20 MG, BID
     Route: 048
     Dates: start: 201512, end: 201601
  14. PEGINTERFERON ALFA-2A [Suspect]
     Active Substance: PEGINTERFERON ALFA-2A
     Indication: Hepatitis C
     Dosage: UNK
     Dates: start: 201509, end: 201512
  15. CHOLECALCIFEROL [Concomitant]
     Active Substance: CHOLECALCIFEROL
     Dosage: SOL. VIGANTOL OEL 5 DROPS (ONCE A DAY DURING MEALS)

REACTIONS (16)
  - Hepatic failure [Recovering/Resolving]
  - Drug-induced liver injury [Recovering/Resolving]
  - Nausea [Recovering/Resolving]
  - Palmar erythema [Recovering/Resolving]
  - Coagulopathy [Recovering/Resolving]
  - Hyperbilirubinaemia [Recovering/Resolving]
  - Dry skin [Recovering/Resolving]
  - Yellow skin [Recovering/Resolving]
  - Jaundice [Recovering/Resolving]
  - Hepatomegaly [Recovering/Resolving]
  - Petechiae [Recovering/Resolving]
  - Rash [Recovering/Resolving]
  - Altered state of consciousness [Recovering/Resolving]
  - Condition aggravated [Recovering/Resolving]
  - Telangiectasia [Recovering/Resolving]
  - Dry mouth [Recovering/Resolving]

NARRATIVE: CASE EVENT DATE: 20160101
